FAERS Safety Report 4414511-6 (Version None)
Quarter: 2004Q2

REPORT INFORMATION
  Report Type: 
  Country: None (occurrence: None)
  Receive Date: 20040630
  Receipt Date: 20040429
  Transmission Date: 20050107
  Serious: Yes (Other)
  Sender: FDA-Public Use
  Company Number: 2004029167

PATIENT
  Age: 30 Year
  Sex: Female

DRUGS (2)
  1. ZOLOFT [Suspect]
     Indication: DEPRESSION
     Dosage: (20 MG)
  2. ZOLPIDEM TARTRATE [Suspect]
     Indication: INSOMNIA

REACTIONS (4)
  - AMNESIA [None]
  - DELUSIONAL DISORDER, UNSPECIFIED TYPE [None]
  - RESTLESS LEGS SYNDROME [None]
  - RESTLESSNESS [None]
